FAERS Safety Report 8223901-5 (Version None)
Quarter: 2012Q1

REPORT INFORMATION
  Report Type: 
  Country: None (occurrence: None)
  Receive Date: 20120321
  Receipt Date: 20120314
  Transmission Date: 20120608
  Serious: Yes (Death, Hospitalization)
  Sender: FDA-Public Use
  Company Number: JP-PFIZER INC-2012072114

PATIENT
  Age: 79 Year
  Sex: Male
  Weight: 50 kg

DRUGS (11)
  1. SHAKUYAKUKANZOUTOU [Concomitant]
  2. MAGNESIUM OXIDE [Concomitant]
  3. GASCON [Concomitant]
  4. PHENYTOIN SODIUM CAP [Suspect]
     Indication: EPILEPSY
     Dosage: 1 G, 2X/DAY
  5. URSO 250 [Concomitant]
  6. LIPITOR [Suspect]
     Indication: DYSLIPIDAEMIA
     Dosage: 10 MG, 1X/DAY
     Route: 048
  7. SELBEX [Concomitant]
     Dosage: FINE GRANULE
  8. PROLMON [Concomitant]
  9. FAMOTIDINE [Concomitant]
     Dosage: POWDER 2 %
  10. ENTERONON R [Concomitant]
  11. DAIKENTYUTO [Concomitant]

REACTIONS (1)
  - HEPATITIS FULMINANT [None]
